FAERS Safety Report 6706133-9 (Version None)
Quarter: 2010Q2

REPORT INFORMATION
  Report Type: 
  Country: None (occurrence: None)
  Receive Date: 20100503
  Receipt Date: 20100428
  Transmission Date: 20101027
  Serious: Yes (Other)
  Sender: FDA-Public Use
  Company Number: JP-RB-004195-10

PATIENT
  Age: 53 Year
  Sex: Female

DRUGS (3)
  1. LEPETAN INJECTION [Suspect]
     Route: 042
     Dates: start: 20071121, end: 20071121
  2. MIDAZOLAM HCL [Concomitant]
     Indication: DRUG USE FOR UNKNOWN INDICATION
     Dosage: DAILY DOSE KNOWN, UNIT DOSE AND FREQUENCY UNKNOWN
     Route: 065
  3. MIDAZOLAM HCL [Suspect]
     Indication: SEDATION
     Route: 042
     Dates: start: 20071121, end: 20071121

REACTIONS (3)
  - DEPRESSED LEVEL OF CONSCIOUSNESS [None]
  - SPUTUM RETENTION [None]
  - VOMITING [None]
